FAERS Safety Report 10340094 (Version 1)
Quarter: 2014Q3

REPORT INFORMATION
  Report Type: Spontaneous
  Country: GB (occurrence: GB)
  Receive Date: 20140724
  Receipt Date: 20140724
  Transmission Date: 20150326
  Serious: Yes (Hospitalization)
  Sender: FDA-Public Use
  Company Number: GB-009507513-1407GBR009135

PATIENT
  Age: 1 Day
  Sex: Female
  Weight: 2.73 kg

DRUGS (21)
  1. PYRIDOXINE [Concomitant]
     Active Substance: PYRIDOXINE
     Dosage: 10 MG, OD
     Route: 064
     Dates: start: 20130513, end: 20130812
  2. RIFINAH [Concomitant]
     Active Substance: ISONIAZID\RIFAMPIN
     Dosage: 4 TABS, OD
     Route: 064
     Dates: start: 20130513, end: 20130812
  3. GAVISCON [Concomitant]
     Active Substance: ALUMINUM HYDROXIDE\MAGNESIUM CARBONATE
     Dosage: ONE OR TWO 5 ML SPOONFULS TO BE TAKEN AFTER MEALS AND AT BEDTIME
     Route: 064
     Dates: start: 20140117, end: 20140429
  4. CLOTRIMAZOLE. [Concomitant]
     Active Substance: CLOTRIMAZOLE
     Dosage: TO BE USED AS DIRECTED
     Route: 064
     Dates: start: 20140117, end: 20140401
  5. AMOXICILLIN. [Concomitant]
     Active Substance: AMOXICILLIN
     Dosage: ONE TO BE TAKEN THREE TIMES A DAY
     Route: 064
     Dates: start: 20131009, end: 20131017
  6. IMPLANON [Suspect]
     Active Substance: ETONOGESTREL
     Dosage: UNK
     Route: 064
     Dates: start: 201012, end: 20130918
  7. RANITIDINE [Concomitant]
     Active Substance: RANITIDINE\RANITIDINE HYDROCHLORIDE
     Dosage: ONE TO BE TAKEN TWICE A DAY
     Route: 064
     Dates: start: 20131028, end: 20140403
  8. PROCHLORPERAZINE. [Concomitant]
     Active Substance: PROCHLORPERAZINE
     Dosage: ONE TO BE TAKEN TWICE A DAY
     Route: 064
     Dates: start: 20131009, end: 20131022
  9. FERROUS FUMARATE [Concomitant]
     Active Substance: FERROUS FUMARATE
     Dosage: ONE TO BE TAKEN TWICE A DAY
     Route: 064
     Dates: start: 20140304
  10. FLOXACILLIN [Concomitant]
     Active Substance: FLUCLOXACILLIN
     Dosage: ONE TO BE TAKEN FOUR TIMES A DAY
     Route: 064
     Dates: start: 20131127, end: 20140618
  11. FOLIC ACID. [Concomitant]
     Active Substance: FOLIC ACID
     Dosage: ONE TAB
     Route: 064
     Dates: start: 20131028, end: 20131126
  12. PSYLLIUM HUSK [Concomitant]
     Active Substance: PSYLLIUM HUSK
     Dosage: DISSOLVE THE CONTENTS OF ONE SACHET IN WATER AND TAKE TWICE A DAY AFTER FOOD
     Route: 064
     Dates: start: 20140217, end: 20140403
  13. IBUPROFEN. [Concomitant]
     Active Substance: IBUPROFEN
     Dosage: ONE OR TWO TO BE TAKEN THREE TIMES A DAY
     Route: 064
     Dates: start: 20130905, end: 20130914
  14. OMEPRAZOLE. [Concomitant]
     Active Substance: OMEPRAZOLE
     Dosage: 1 TWICE A DAY
     Route: 064
     Dates: start: 20121205
  15. FULTIUM D3 [Concomitant]
     Dosage: ONE, OD
     Route: 064
     Dates: start: 20131104, end: 20131203
  16. CLOTRIMAZOLE. [Concomitant]
     Active Substance: CLOTRIMAZOLE
     Dosage: TO BE USED AS DIRECTED
     Route: 064
     Dates: start: 20140117, end: 20140403
  17. CYCLIZINE [Concomitant]
     Active Substance: CYCLIZINE
     Dosage: ONE TO BE TAKEN THREE TIMES A DAY
     Route: 064
     Dates: start: 20130911, end: 20130928
  18. NEXPLANON [Suspect]
     Active Substance: ETONOGESTREL
     Dosage: UNK
     Route: 064
     Dates: start: 201012, end: 20130912
  19. AMOXICILLIN. [Concomitant]
     Active Substance: AMOXICILLIN
     Dosage: ONE TO BE TAKEN THREE TIMES A DAY
     Route: 064
     Dates: start: 20130723, end: 20130731
  20. LACTULOSE. [Concomitant]
     Active Substance: LACTULOSE
     Dosage: 5-10 MLS TWICE A DAY AS REQUIRED
     Route: 064
     Dates: start: 20140317, end: 20140429
  21. POTASSIUM BICARBONATE (+) SODIUM ALGINATE [Concomitant]
     Dosage: STRENGTH 100MG/5ML+500MG/5 ML, 10ML, TWICE A DAY
     Route: 064
     Dates: start: 20131009, end: 20140109

REACTIONS (3)
  - Respiratory disorder neonatal [Unknown]
  - Premature baby [Unknown]
  - Foetal exposure during pregnancy [Unknown]

NARRATIVE: CASE EVENT DATE: 20140422
